FAERS Safety Report 12983345 (Version 1)
Quarter: 2016Q4

REPORT INFORMATION
  Report Type: Spontaneous
  Country: SG (occurrence: SG)
  Receive Date: 20161129
  Receipt Date: 20161129
  Transmission Date: 20170207
  Serious: Yes (Life-Threatening)
  Sender: FDA-Public Use
  Company Number: SG-FRESENIUS KABI-FK201609086

PATIENT
  Age: 48 Year
  Sex: Male

DRUGS (2)
  1. METHYLPREDNISOLONE (MANUFACTURER UNKNOWN) [Suspect]
     Active Substance: METHYLPREDNISOLONE
     Indication: IMMUNOSUPPRESSANT DRUG THERAPY
     Route: 042
  2. CYCLOPHOSPHAMIDE (MANUFACTURER UNKNOWN) [Suspect]
     Active Substance: CYCLOPHOSPHAMIDE
     Indication: IMMUNOSUPPRESSANT DRUG THERAPY
     Route: 042

REACTIONS (3)
  - Melaena [Recovered/Resolved]
  - Shock haemorrhagic [Recovered/Resolved]
  - Cytomegalovirus gastrointestinal infection [Recovered/Resolved]
